FAERS Safety Report 5745970-4 (Version None)
Quarter: 2008Q2

REPORT INFORMATION
  Report Type: 
  Country: None (occurrence: None)
  Receive Date: 20080520
  Receipt Date: 20080512
  Transmission Date: 20081010
  Serious: Yes (Death)
  Sender: FDA-Public Use
  Company Number: 163-20785-08041019

PATIENT
  Age: 68 Year
  Sex: Female

DRUGS (1)
  1. THALOMID [Suspect]
     Indication: MULTIPLE MYELOMA
     Dosage: 50 MG, QOD; ORAL
     Route: 048
     Dates: start: 20040106, end: 20080301

REACTIONS (2)
  - CARDIAC ARREST [None]
  - POST PROCEDURAL COMPLICATION [None]
